FAERS Safety Report 5960887-8 (Version None)
Quarter: 2008Q4

REPORT INFORMATION
  Report Type: 
  Country: None (occurrence: None)
  Receive Date: 20081118
  Receipt Date: 20081024
  Transmission Date: 20090506
  Serious: Yes (Other)
  Sender: FDA-Public Use
  Company Number: GXKR2008DE10080

PATIENT
  Sex: Female
  Weight: 61 kg

DRUGS (2)
  1. ACETAMINOPHEN [Suspect]
     Indication: PYREXIA
     Dosage: 500 MG, BID, ORAL
     Route: 048
     Dates: start: 20080505, end: 20080606
  2. AMOXIBETA (AMOXICILLIN TRIHYDRATE) [Suspect]
     Indication: TONSILLITIS
     Dosage: 500 MG, TID
     Dates: start: 20080505, end: 20080512

REACTIONS (1)
  - AUTOIMMUNE THROMBOCYTOPENIA [None]
